FAERS Safety Report 5517563-5 (Version None)
Quarter: 2007Q4

REPORT INFORMATION
  Report Type: 
  Country: None (occurrence: None)
  Receive Date: 20071114
  Receipt Date: 20071109
  Transmission Date: 20080405
  Serious: Yes (Other)
  Sender: FDA-Public Use
  Company Number: US-SHR-US-2007-038820

PATIENT
  Age: 23 Year
  Sex: Female
  Weight: 95 kg

DRUGS (1)
  1. MIRENA [Suspect]
     Indication: CONTRACEPTION
     Dosage: 20 A?G/DAY, CONT
     Route: 015
     Dates: start: 20070830

REACTIONS (5)
  - ANXIETY [None]
  - IUCD COMPLICATION [None]
  - MOOD SWINGS [None]
  - SWELLING FACE [None]
  - SYNCOPE [None]
